FAERS Safety Report 8209208-0 (Version None)
Quarter: 2012Q1

REPORT INFORMATION
  Report Type: 
  Country: None (occurrence: None)
  Receive Date: 20120314
  Receipt Date: 20120306
  Transmission Date: 20120608
  Serious: Yes (Other)
  Sender: FDA-Public Use
  Company Number: PHHY2012FR020554

PATIENT
  Sex: Male

DRUGS (3)
  1. CALCIUM CHANNEL BLOCKERS [Suspect]
  2. PROPRANOLOL [Suspect]
  3. RASILEZ [Suspect]
     Dosage: 1 DF, UNK
     Route: 048

REACTIONS (4)
  - DIZZINESS [None]
  - CYANOSIS [None]
  - ANGIOEDEMA [None]
  - COUGH [None]
